FAERS Safety Report 4514346-X (Version None)
Quarter: 2004Q4

REPORT INFORMATION
  Report Type: 
  Country: None (occurrence: None)
  Receive Date: 20041124
  Receipt Date: 20041109
  Transmission Date: 20050328
  Serious: Yes (Life-Threatening, Hospitalization, Other)
  Sender: FDA-Public Use
  Company Number: GBS041115905

PATIENT
  Age: 44 Year
  Sex: Female
  Weight: 70 kg

DRUGS (7)
  1. OLANZAPINE [Suspect]
     Indication: DEPRESSION
     Dosage: 10 MG
     Dates: start: 20010101
  2. DIAZEPAM [Concomitant]
  3. PROMAZINE HCL [Concomitant]
  4. DOTHIEPIN HYDROCHLORIDE [Concomitant]
  5. ZOPICLONE (ZOPICLONE) [Concomitant]
  6. AMOXICILLIN [Concomitant]
  7. QUININE SULPHATE [Concomitant]

REACTIONS (5)
  - BLOOD CREATINE PHOSPHOKINASE INCREASED [None]
  - CARDIOGENIC SHOCK [None]
  - CONGESTIVE CARDIOMYOPATHY [None]
  - HEPATIC FAILURE [None]
  - HEPATIC NECROSIS [None]
